FAERS Safety Report 7578683-7 (Version None)
Quarter: 2011Q2

REPORT INFORMATION
  Report Type: 
  Country: None (occurrence: None)
  Receive Date: 20110628
  Receipt Date: 20110624
  Transmission Date: 20111010
  Serious: Yes (Death)
  Sender: FDA-Public Use
  Company Number: B0729100A

PATIENT
  Sex: Male
  Weight: 57 kg

DRUGS (5)
  1. ALLOPURINOL [Concomitant]
     Indication: PROPHYLAXIS
     Route: 048
     Dates: start: 20110606, end: 20110615
  2. BACTRIM [Concomitant]
     Indication: PROPHYLAXIS
     Dosage: 2CAP THREE TIMES PER DAY
     Route: 048
     Dates: start: 20110606, end: 20110615
  3. BENDAMUSTINE [Suspect]
     Dosage: 230MG CUMULATIVE DOSE
     Route: 042
     Dates: start: 20110607, end: 20110608
  4. OFATUMUMAB [Suspect]
     Dosage: 1300MG CUMULATIVE DOSE
     Route: 042
     Dates: start: 20110606, end: 20110613
  5. ACYCLOVIR [Concomitant]
     Indication: ANTIVIRAL PROPHYLAXIS
     Route: 048
     Dates: start: 20110606, end: 20110615

REACTIONS (1)
  - SEPTIC SHOCK [None]
